FAERS Safety Report 14022561 (Version 3)
Quarter: 2018Q2

REPORT INFORMATION
  Report Type: Spontaneous
  Country: FR (occurrence: FR)
  Receive Date: 20170929
  Receipt Date: 20180419
  Transmission Date: 20180711
  Serious: Yes (Other)
  Sender: FDA-Public Use
  Company Number: FR-MERCK KGAA-2028172

PATIENT
  Age: 64 Year
  Sex: Female
  Weight: 96 kg

DRUGS (9)
  1. SERESTA [Concomitant]
     Active Substance: OXAZEPAM
  2. PANFUREX [Concomitant]
     Active Substance: NIFUROXAZIDE
  3. ULTRA LEVURE [Concomitant]
     Active Substance: SACCHAROMYCES CEREVISIAE
  4. PARACETAMOL [Concomitant]
     Active Substance: ACETAMINOPHEN
  5. SMECTA [Concomitant]
     Active Substance: MONTMORILLONITE
  6. NOVOTHYROX [Suspect]
     Active Substance: LEVOTHYROXINE SODIUM
     Indication: THYROIDECTOMY
     Route: 048
     Dates: start: 20170511
  7. TRIMEBUTINE [Concomitant]
     Active Substance: TRIMEBUTINE
  8. LEVOTHYROX NF [Suspect]
     Active Substance: LEVOTHYROXINE SODIUM
     Dates: end: 20171003
  9. CRESTOR [Concomitant]
     Active Substance: ROSUVASTATIN CALCIUM

REACTIONS (5)
  - Weight increased [Not Recovered/Not Resolved]
  - Abdominal pain [Not Recovered/Not Resolved]
  - Diarrhoea [Not Recovered/Not Resolved]
  - Migraine [Not Recovered/Not Resolved]
  - Fatigue [Not Recovered/Not Resolved]

NARRATIVE: CASE EVENT DATE: 20170811
